FAERS Safety Report 7341131-6 (Version None)
Quarter: 2011Q1

REPORT INFORMATION
  Report Type: 
  Country: None (occurrence: None)
  Receive Date: 20110309
  Receipt Date: 20110301
  Transmission Date: 20110831
  Serious: Yes (Death)
  Sender: FDA-Public Use
  Company Number: A0916105A

PATIENT
  Age: 82 Year
  Sex: Female

DRUGS (3)
  1. COMPAZINE [Concomitant]
  2. ZOVIRAX [Suspect]
     Dosage: 200MG FOUR TIMES PER DAY
     Route: 048
     Dates: start: 20110225
  3. REVLIMID [Concomitant]

REACTIONS (1)
  - DEATH [None]
